FAERS Safety Report 11149880 (Version 2)
Quarter: 2015Q2

REPORT INFORMATION
  Report Type: Report from Study
  Country: DE (occurrence: DE)
  Receive Date: 20150529
  Receipt Date: 20150610
  Transmission Date: 20150821
  Serious: Yes (Hospitalization, Other)
  Sender: FDA-Public Use
  Company Number: DE-ABBVIE-15P-062-1397741-00

PATIENT
  Age: 31 Year
  Sex: Male
  Weight: 90 kg

DRUGS (3)
  1. EXVIERA [Suspect]
     Active Substance: DASABUVIR
     Indication: CHRONIC HEPATITIS C
     Route: 048
     Dates: start: 20150205, end: 20150430
  2. COPEGUS [Suspect]
     Active Substance: RIBAVIRIN
     Indication: CHRONIC HEPATITIS C
     Route: 048
     Dates: start: 20150205, end: 20150402
  3. VIEKIRAX [Suspect]
     Active Substance: OMBITASVIR\PARITAPREVIR\RITONAVIR
     Indication: CHRONIC HEPATITIS C
     Route: 048
     Dates: start: 20150205, end: 20150430

REACTIONS (6)
  - Dyspnoea [Not Recovered/Not Resolved]
  - Fatigue [Not Recovered/Not Resolved]
  - Haemoglobin decreased [Not Recovered/Not Resolved]
  - Rectal haemorrhage [Not Recovered/Not Resolved]
  - Syncope [Not Recovered/Not Resolved]
  - Rectal haemorrhage [Unknown]

NARRATIVE: CASE EVENT DATE: 20150223
